FAERS Safety Report 7645141-0 (Version None)
Quarter: 2011Q3

REPORT INFORMATION
  Report Type: 
  Country: None (occurrence: None)
  Receive Date: 20110729
  Receipt Date: 20110720
  Transmission Date: 20111222
  Serious: Yes (Hospitalization)
  Sender: FDA-Public Use
  Company Number: FR-CEPHALON-2011003853

PATIENT
  Sex: Male

DRUGS (3)
  1. ACTIQ [Suspect]
     Indication: CANCER PAIN
     Route: 060
     Dates: start: 20110201, end: 20110501
  2. MORPHINE SULFATE [Suspect]
     Dates: start: 20110201
  3. MORPHINE SULFATE [Suspect]
     Dates: start: 20110201

REACTIONS (3)
  - INTENTIONAL DRUG MISUSE [None]
  - DISORIENTATION [None]
  - PSYCHOMOTOR SKILLS IMPAIRED [None]
